FAERS Safety Report 4560739-4 (Version None)
Quarter: 2005Q1

REPORT INFORMATION
  Report Type: 
  Country: None (occurrence: None)
  Receive Date: 20050124
  Receipt Date: 20050117
  Transmission Date: 20050727
  Serious: Yes (Hospitalization)
  Sender: FDA-Public Use
  Company Number: DEWYE344217JAN05

PATIENT
  Age: 39 Year
  Sex: Female

DRUGS (2)
  1. VENLAFAXINE HCL [Suspect]
     Dosage: 5 TO 6 TABLETS 75 MG EACH (OVERDOSE AMOUNT 225 TO 300 MG)
     Route: 048
     Dates: start: 20050115, end: 20050115
  2. ALCOHOL (ETHANOL) [Suspect]
     Dosage: 3 GLASSES OF SPARKLING WINE AND 1 BOTTLE OF WINE
     Route: 048
     Dates: start: 20050115, end: 20050115

REACTIONS (3)
  - DRUG ABUSER [None]
  - OVERDOSE [None]
  - TACHYCARDIA [None]
